FAERS Safety Report 21301651 (Version 1)
Quarter: 2022Q3

REPORT INFORMATION
  Report Type: Spontaneous
  Country: CA (occurrence: CA)
  Receive Date: 20220907
  Receipt Date: 20220907
  Transmission Date: 20221027
  Serious: Yes (Other)
  Sender: FDA-Public Use
  Company Number: CA-Accord-247782

PATIENT
  Age: 66 Year
  Sex: Female
  Weight: 58.1 kg

DRUGS (12)
  1. PACLITAXEL [Suspect]
     Active Substance: PACLITAXEL
     Indication: Ovarian cancer
     Dosage: DOSE: 276
     Route: 042
     Dates: start: 20211116
  2. FOSAVANCE [Concomitant]
     Active Substance: ALENDRONATE SODIUM\CHOLECALCIFEROL
     Indication: Product used for unknown indication
     Dosage: EVERY 7 DAYS
     Route: 048
  3. BUDESONIDE [Concomitant]
     Active Substance: BUDESONIDE
     Indication: Asthma
     Dosage: DOSE: 0.25MCG QAM
     Route: 055
  4. RHINOCORT AQUA [Concomitant]
     Active Substance: BUDESONIDE
     Indication: Asthma
     Dosage: DOSE: 64 MCG AS DIRECTED
     Route: 055
  5. ALBUTEROL [Concomitant]
     Active Substance: ALBUTEROL
     Indication: Asthma
     Dosage: DOSE: 100 MCG-200 MCG QID PM
     Route: 055
  6. FLOVENT [Concomitant]
     Active Substance: FLUTICASONE PROPIONATE
     Indication: Asthma
     Dosage: DOSE: 125 MG-250 MCG BID
     Route: 055
  7. TEGRETOL XR [Concomitant]
     Active Substance: CARBAMAZEPINE
     Indication: Seizure
     Dosage: DOSE: 400 MG Q12H, TABLET (EXTENDED RELEASE)
     Route: 048
  8. CALCIUM\CHOLECALCIFEROL [Concomitant]
     Active Substance: CALCIUM\CHOLECALCIFEROL
     Dosage: DAILY
     Route: 048
  9. VITAMINS [Concomitant]
     Active Substance: VITAMINS
     Dosage: DAILY
     Route: 048
  10. VITAMINS [Concomitant]
     Active Substance: VITAMINS
     Dosage: DAILY
     Route: 048
  11. POLYETHYLENE GLYCOL [Concomitant]
     Active Substance: POLYETHYLENE GLYCOL
     Dosage: DOSE: 17 GM DAILY, POWDER FOR SOLUTION
     Route: 048
  12. PATANOL [Concomitant]
     Active Substance: OLOPATADINE HYDROCHLORIDE
     Dosage: STRENGTH: 0.1%?DOSE: 1-2 DROPS TO BOTH EYES DAILY, SOLUTION OPHTHALMIC

REACTIONS (5)
  - Syncope [Recovered/Resolved]
  - Abdominal pain [Recovered/Resolved]
  - Flushing [Recovered/Resolved]
  - Somnolence [Recovered/Resolved]
  - Hypotension [Recovered/Resolved]

NARRATIVE: CASE EVENT DATE: 20211116
